FAERS Safety Report 8787767 (Version 1)
Quarter: 2012Q4

REPORT INFORMATION
  Report Type: Report from Study
  Country: US (occurrence: US)
  Receive Date: 20120914
  Receipt Date: 20120914
  Transmission Date: 20130627
  Serious: No
  Sender: FDA-Public Use
  Company Number: US-VERTEX PHARMACEUTICAL INC.-AE-2012-005397

PATIENT
  Age: 43 Year
  Sex: Male
  Weight: 65 kg

DRUGS (5)
  1. INCIVEK [Suspect]
     Indication: HEPATITIS C
     Route: 048
  2. PEGASYS [Concomitant]
     Indication: HEPATITIS C
  3. RIBAVIRIN [Concomitant]
     Indication: HEPATITIS C
  4. ASACOL HD [Concomitant]
  5. NOVOLOG [Concomitant]

REACTIONS (6)
  - Irritability [Unknown]
  - Insomnia [Unknown]
  - Dry skin [Unknown]
  - Fatigue [Unknown]
  - Rash pruritic [Unknown]
  - Dysgeusia [Unknown]
